FAERS Safety Report 16740112 (Version 2)
Quarter: 2019Q3

REPORT INFORMATION
  Report Type: Spontaneous
  Country: US (occurrence: US)
  Receive Date: 20190826
  Receipt Date: 20190826
  Transmission Date: 20191005
  Serious: Yes (Hospitalization)
  Sender: FDA-Public Use
  Company Number: US-SAGEPROD-000001

PATIENT
  Sex: Female

DRUGS (1)
  1. 2% CHLORHEXIDINE GLUCONATE WIPES [Suspect]
     Active Substance: CHLORHEXIDINE GLUCONATE
     Indication: PREOPERATIVE CARE
     Route: 061

REACTIONS (6)
  - Feeling abnormal [Recovered/Resolved]
  - Headache [Recovered/Resolved]
  - Retching [Recovered/Resolved]
  - Hypersensitivity [Recovered/Resolved]
  - Vomiting [Recovered/Resolved]
  - Urticaria [Recovered/Resolved]

NARRATIVE: CASE EVENT DATE: 20190724
